FAERS Safety Report 6903544-3 (Version None)
Quarter: 2010Q3

REPORT INFORMATION
  Report Type: 
  Country: None (occurrence: None)
  Receive Date: 20100803
  Receipt Date: 20081020
  Transmission Date: 20110219
  Serious: No
  Sender: FDA-Public Use
  Company Number: US-PFIZER INC-2008088675

PATIENT
  Sex: Female
  Weight: 71.67 kg

DRUGS (7)
  1. LYRICA [Suspect]
     Indication: FIBROMYALGIA
     Dates: start: 20080601, end: 20080801
  2. THYROID TAB [Concomitant]
  3. LEXAPRO [Concomitant]
  4. VITAMIN TAB [Concomitant]
  5. CYMBALTA [Concomitant]
     Indication: DEPRESSION
  6. SYNTHROID [Concomitant]
  7. VIVELLE-DOT [Concomitant]

REACTIONS (4)
  - DEPRESSION [None]
  - DRY MOUTH [None]
  - HEADACHE [None]
  - VISION BLURRED [None]
